FAERS Safety Report 22339450 (Version 1)
Quarter: 2023Q2

REPORT INFORMATION
  Report Type: Report from Study
  Country: US (occurrence: US)
  Receive Date: 20230518
  Receipt Date: 20230518
  Transmission Date: 20230722
  Serious: Yes (Hospitalization)
  Sender: FDA-Public Use
  Company Number: US-JNJFOC-20230533772

PATIENT
  Sex: Male
  Weight: 83.7 kg

DRUGS (1)
  1. INFLIXIMAB [Suspect]
     Active Substance: INFLIXIMAB
     Indication: Inflammatory bowel disease
     Route: 041
     Dates: start: 20170504, end: 20170727

REACTIONS (1)
  - Joint effusion [Recovered/Resolved]

NARRATIVE: CASE EVENT DATE: 20211013
